FAERS Safety Report 5936697-4 (Version None)
Quarter: 2008Q4

REPORT INFORMATION
  Report Type: 
  Country: None (occurrence: None)
  Receive Date: 20081030
  Receipt Date: 20081021
  Transmission Date: 20090506
  Serious: Yes (Other)
  Sender: FDA-Public Use
  Company Number: GB-MERCK-0810GBR00120

PATIENT
  Age: 74 Year
  Sex: Female
  Weight: 90 kg

DRUGS (10)
  1. ZETIA [Suspect]
     Indication: BLOOD CHOLESTEROL INCREASED
     Route: 048
     Dates: start: 20050101, end: 20080101
  2. ACIPIMOX [Concomitant]
     Route: 065
  3. ALLOPURINOL [Concomitant]
     Route: 065
  4. ASPIRIN [Concomitant]
     Route: 065
  5. TERBUTALINE SULFATE [Concomitant]
  6. DOXAZOSIN MESYLATE [Concomitant]
     Route: 065
  7. FUROSEMIDE [Concomitant]
     Route: 065
  8. NITROGLYCERIN [Concomitant]
     Route: 065
  9. COZAAR [Concomitant]
     Route: 065
  10. OMEPRAZOLE [Concomitant]
     Route: 065

REACTIONS (2)
  - ARTHRALGIA [None]
  - GOUT [None]
